FAERS Safety Report 6983864-7 (Version None)
Quarter: 2010Q3

REPORT INFORMATION
  Report Type: 
  Country: None (occurrence: None)
  Receive Date: 20100914
  Receipt Date: 20090325
  Transmission Date: 20110219
  Serious: No
  Sender: FDA-Public Use
  Company Number: US-WYE-H08712109

PATIENT
  Age: 63 Year
  Sex: Female
  Weight: 77.18 kg

DRUGS (5)
  1. ADVIL LIQUI-GELS [Suspect]
     Indication: PAIN
     Dosage: 2 TABLETS AS NEEDED
     Route: 048
     Dates: end: 20090324
  2. HYDROCHLOROTHIAZIDE [Concomitant]
  3. LISINOPRIL [Concomitant]
  4. LIPITOR [Concomitant]
  5. LEVOTHYROXINE [Concomitant]

REACTIONS (4)
  - CHILLS [None]
  - FEELING COLD [None]
  - VIRAL INFECTION [None]
  - VOMITING [None]
